FAERS Safety Report 24049158 (Version 1)
Quarter: 2024Q3

REPORT INFORMATION
  Report Type: Spontaneous
  Country: FR (occurrence: FR)
  Receive Date: 20240704
  Receipt Date: 20240704
  Transmission Date: 20241017
  Serious: Yes (Hospitalization)
  Sender: AUROBINDO
  Company Number: FR-AUROBINDO-AUR-APL-2024-031894

PATIENT
  Age: 69 Year
  Sex: Male

DRUGS (4)
  1. IRINOTECAN [Suspect]
     Active Substance: IRINOTECAN
     Indication: Rectal adenocarcinoma
     Dosage: 360 MILLIGRAM, CYCLICAL((C6 (360 MG /CYCLE))
     Route: 042
     Dates: start: 202401, end: 20240514
  2. VISIPAQUE [Suspect]
     Active Substance: IODIXANOL
     Indication: Computerised tomogram
     Dosage: UNK
     Route: 042
     Dates: start: 20240516, end: 20240516
  3. FLUOROURACIL [Suspect]
     Active Substance: FLUOROURACIL
     Indication: Rectal adenocarcinoma
     Dosage: 5600 MILLIGRAM, CYCLICAL(C6)
     Route: 042
     Dates: start: 202401, end: 20240514
  4. BEVACIZUMAB [Concomitant]
     Active Substance: BEVACIZUMAB
     Indication: Product used for unknown indication
     Dosage: UNK
     Route: 065

REACTIONS (2)
  - Rash scarlatiniform [Recovered/Resolved]
  - Liver function test abnormal [Recovered/Resolved]

NARRATIVE: CASE EVENT DATE: 20240518
